FAERS Safety Report 4930202-7 (Version None)
Quarter: 2006Q1

REPORT INFORMATION
  Report Type: 
  Country: None (occurrence: None)
  Receive Date: 20060302
  Receipt Date: 20060203
  Transmission Date: 20060701
  Serious: Yes (Other)
  Sender: FDA-Public Use
  Company Number: JP-ROCHE-437270

PATIENT
  Age: 8 Year
  Sex: Female

DRUGS (4)
  1. TAMIFLU [Suspect]
     Route: 048
     Dates: start: 20060119, end: 20060119
  2. ASVERIN [Concomitant]
     Dosage: DOSE FORM REPORTED AS ORAL FORMULATION (NOT OTHERWISE SPECIFIED)
     Route: 048
  3. MUCODYNE [Concomitant]
     Route: 048
  4. ALPINY [Concomitant]
     Route: 054

REACTIONS (2)
  - ABNORMAL BEHAVIOUR [None]
  - ENCEPHALOPATHY [None]
